FAERS Safety Report 19011323 (Version 1)
Quarter: 2021Q1

REPORT INFORMATION
  Report Type: Spontaneous
  Country: FR (occurrence: FR)
  Receive Date: 20210315
  Receipt Date: 20210315
  Transmission Date: 20210420
  Serious: Yes (Life-Threatening)
  Sender: FDA-Public Use
  Company Number: NVSC2021FR058687

PATIENT
  Age: 44 Year
  Sex: Male
  Weight: 74 kg

DRUGS (5)
  1. CELLCEPT [Suspect]
     Active Substance: MYCOPHENOLATE MOFETIL\MYCOPHENOLATE MOFETIL HYDROCHLORIDE
     Indication: DERMATITIS ATOPIC
     Dosage: UNK
     Route: 048
     Dates: start: 201602, end: 201709
  2. CLAIRYG [Suspect]
     Active Substance: HUMAN IMMUNOGLOBULIN G
     Indication: DERMATITIS ATOPIC
     Dosage: UNK
     Route: 041
     Dates: start: 201604, end: 201709
  3. CICLOSPORIN [Suspect]
     Active Substance: CYCLOSPORINE
     Indication: DERMATITIS ATOPIC
     Dosage: UNK
     Route: 048
     Dates: start: 201402, end: 201602
  4. IMUREL [Suspect]
     Active Substance: AZATHIOPRINE SODIUM
     Indication: DERMATITIS ATOPIC
     Dosage: UNK
     Route: 048
     Dates: start: 201304, end: 201401
  5. METHOTREXATE. [Suspect]
     Active Substance: METHOTREXATE
     Indication: DERMATITIS ATOPIC
     Dosage: 12.5 MG
     Route: 058
     Dates: start: 201212, end: 201304

REACTIONS (1)
  - Malignant melanoma [Not Recovered/Not Resolved]

NARRATIVE: CASE EVENT DATE: 20210104
